FAERS Safety Report 9300266 (Version 2)
Quarter: 2013Q3

REPORT INFORMATION
  Report Type: Report from Study
  Country: AR (occurrence: AR)
  Receive Date: 20130521
  Receipt Date: 20130702
  Transmission Date: 20140515
  Serious: Yes (Other)
  Sender: FDA-Public Use
  Company Number: PHHY2013AR049909

PATIENT
  Sex: Male

DRUGS (2)
  1. DIOVAN D [Suspect]
     Dosage: 1 DF, (320MG VALS, 25MG HCT), DAILY
     Route: 048
  2. EXFORGE D [Suspect]
     Dosage: 1 DF, (320MG VAL, 10MG AMLO, 25MG HCT)
     Route: 048

REACTIONS (1)
  - Arrhythmia [Recovered/Resolved]
